FAERS Safety Report 9413427 (Version 3)
Quarter: 2013Q4

REPORT INFORMATION
  Report Type: Spontaneous
  Country: JP (occurrence: JP)
  Receive Date: 20130722
  Receipt Date: 20131030
  Transmission Date: 20140711
  Serious: Yes (Death, Life-Threatening)
  Sender: FDA-Public Use
  Company Number: JP-GE HEALTHCARE MEDICAL DIAGNOSTICS-MSTR-PR-1307S-0015

PATIENT
  Age: 61 Year
  Sex: Male
  Weight: 62.6 kg

DRUGS (11)
  1. METASTRON [Suspect]
     Indication: METASTATIC PAIN
     Route: 042
     Dates: start: 20120607, end: 20120607
  2. METASTRON [Suspect]
     Indication: DIAGNOSTIC PROCEDURE
     Route: 042
     Dates: start: 20121227, end: 20121227
  3. METASTRON [Suspect]
     Route: 042
     Dates: start: 20121227, end: 20121227
  4. LOXOPROFEN SODIUM HYDRATE [Concomitant]
  5. RABEPRAZOLE SODIUM [Concomitant]
  6. ZOLPIDEM TARTRATE [Concomitant]
  7. CELECOXIB [Concomitant]
  8. PROCHLORPERAZINE MALEATE [Concomitant]
  9. OXYCODONE [Concomitant]
  10. OXYCODONE HYDROCHLORIDE HYDRATE [Concomitant]
     Dosage: AS NEEDED
  11. FENTANYL CITRATE [Concomitant]
     Route: 062

REACTIONS (2)
  - Myelodysplastic syndrome [Not Recovered/Not Resolved]
  - Acute myeloid leukaemia [Fatal]
